FAERS Safety Report 20024639 (Version 1)
Quarter: 2021Q4

REPORT INFORMATION
  Report Type: Spontaneous
  Country: RO (occurrence: RO)
  Receive Date: 20211102
  Receipt Date: 20211102
  Transmission Date: 20220303
  Serious: Yes (Other)
  Sender: FDA-Public Use
  Company Number: RO-PFIZER INC-2021895879

PATIENT
  Age: 25 Year
  Sex: Male

DRUGS (3)
  1. ZOLEDRONIC ACID [Suspect]
     Active Substance: ZOLEDRONIC ACID
     Indication: Product used for unknown indication
     Dosage: UNK
  2. GEMCITABINE [Concomitant]
     Active Substance: GEMCITABINE
     Dosage: UNK
  3. CISPLATIN [Concomitant]
     Active Substance: CISPLATIN
     Dosage: UNK

REACTIONS (4)
  - Hepatic cytolysis [Unknown]
  - Neoplasm progression [Unknown]
  - Transaminases increased [Unknown]
  - Hepatitis C antibody positive [Unknown]

NARRATIVE: CASE EVENT DATE: 20190601
